FAERS Safety Report 6610164-7 (Version None)
Quarter: 2010Q1

REPORT INFORMATION
  Report Type: 
  Country: None (occurrence: None)
  Receive Date: 20100302
  Receipt Date: 20100218
  Transmission Date: 20100710
  Serious: Yes (Hospitalization)
  Sender: FDA-Public Use
  Company Number: US-PFIZER INC-2010020972

PATIENT
  Sex: Male
  Weight: 89.887 kg

DRUGS (3)
  1. SUTENT [Suspect]
     Indication: BLADDER CANCER
     Dosage: 37.5 MG, DAYS 1-14
     Route: 048
     Dates: start: 20100212, end: 20100214
  2. CISPLATIN [Suspect]
     Indication: BLADDER CANCER
     Dosage: 725 MG, DAY 1
     Route: 042
     Dates: start: 20100212, end: 20100212
  3. GEMZAR [Suspect]
     Indication: BLADDER CANCER
     Dosage: 1664 MG, DAY 1 AND DAY 8
     Route: 042
     Dates: start: 20100212, end: 20100212

REACTIONS (1)
  - SYNCOPE [None]
